FAERS Safety Report 6148644-3 (Version None)
Quarter: 2009Q2

REPORT INFORMATION
  Report Type: 
  Country: None (occurrence: None)
  Receive Date: 20090408
  Receipt Date: 20090331
  Transmission Date: 20091009
  Serious: Yes (Hospitalization)
  Sender: FDA-Public Use
  Company Number: ES-PFIZER INC-2009178409

PATIENT

DRUGS (1)
  1. LYRICA [Suspect]
     Indication: BACK PAIN
     Dates: start: 20080412, end: 20080421

REACTIONS (1)
  - DEPRESSED LEVEL OF CONSCIOUSNESS [None]
